FAERS Safety Report 5619743-7 (Version None)
Quarter: 2008Q1

REPORT INFORMATION
  Report Type: 
  Country: None (occurrence: None)
  Receive Date: 20080208
  Receipt Date: 20071217
  Transmission Date: 20080703
  Serious: No
  Sender: FDA-Public Use
  Company Number: A0696802A

PATIENT
  Age: 11 Year
  Sex: Female
  Weight: 64.5 kg

DRUGS (1)
  1. ALTABAX [Suspect]
     Indication: WOUND INFECTION
     Route: 061
     Dates: start: 20071024, end: 20071029

REACTIONS (2)
  - APPLICATION SITE EXCORIATION [None]
  - FUNGAL SKIN INFECTION [None]
